FAERS Safety Report 8796506 (Version 2)
Quarter: 2014Q1

REPORT INFORMATION
  Report Type: Spontaneous
  Country: US (occurrence: US)
  Receive Date: 20120919
  Receipt Date: 20140123
  Transmission Date: 20141002
  Serious: No
  Sender: FDA-Public Use
  Company Number: US-ASTRAZENECA-2012SE70932

PATIENT
  Age: 59 Year
  Sex: Female
  Weight: 113.4 kg

DRUGS (11)
  1. NEXIUM [Suspect]
     Indication: GASTROOESOPHAGEAL REFLUX DISEASE
     Route: 048
     Dates: start: 2011, end: 201312
  2. NEXIUM [Suspect]
     Indication: OESOPHAGEAL DISORDER
     Route: 048
     Dates: start: 2011, end: 201312
  3. SYMBICORT PMDI [Suspect]
     Indication: ASTHMA
     Dosage: UNKNOWN BID
     Route: 055
     Dates: start: 201307
  4. OTC PREVACID [Suspect]
  5. WELLBUTRIN [Concomitant]
     Indication: FIBROMYALGIA
     Route: 048
     Dates: start: 2003
  6. DILTIAZEM [Concomitant]
     Indication: EXTRASYSTOLES
     Route: 048
     Dates: start: 1994
  7. DILTIAZEM [Concomitant]
     Indication: HEART RATE INCREASED
     Route: 048
     Dates: start: 1994
  8. LORATIDINE [Concomitant]
     Indication: MULTIPLE ALLERGIES
     Route: 048
  9. PROVENTIL [Concomitant]
     Indication: INHALATION THERAPY
     Dosage: UNKNOWN PRN
     Route: 055
  10. SIENNA [Concomitant]
     Indication: LAXATIVE SUPPORTIVE CARE
     Dosage: UNKNOWN DAILY
     Route: 048
  11. ADVAIR [Concomitant]

REACTIONS (11)
  - Gastrooesophageal reflux disease [Unknown]
  - Oesophagitis [Unknown]
  - Wheezing [Not Recovered/Not Resolved]
  - Feeling abnormal [Unknown]
  - Dyspnoea [Unknown]
  - Aphagia [Unknown]
  - Constipation [Unknown]
  - Malaise [Unknown]
  - Throat irritation [Unknown]
  - Drug dose omission [Not Recovered/Not Resolved]
  - Drug effect incomplete [Not Recovered/Not Resolved]
